FAERS Safety Report 6416883-X (Version None)
Quarter: 2009Q4

REPORT INFORMATION
  Report Type: 
  Country: None (occurrence: None)
  Receive Date: 20091023
  Receipt Date: 20091016
  Transmission Date: 20100525
  Serious: Yes (Disabling, Other)
  Sender: FDA-Public Use
  Company Number: ADR45332009

PATIENT
  Age: 56 Year
  Sex: Female

DRUGS (4)
  1. ALENDRONIC ACID (MFR: UNKNOWN) [Suspect]
     Indication: BONE DISORDER
     Dosage: 70 MG - 1/1 WEEK ORAL
     Route: 048
     Dates: start: 20090818, end: 20090819
  2. ASACOL [Concomitant]
  3. CALCICHEW [Concomitant]
  4. PREDNISOLONE [Concomitant]

REACTIONS (4)
  - CHEST PAIN [None]
  - CHILLS [None]
  - FEELING COLD [None]
  - NAUSEA [None]
